FAERS Safety Report 6046475-6 (Version None)
Quarter: 2009Q1

REPORT INFORMATION
  Report Type: 
  Country: None (occurrence: None)
  Receive Date: 20090122
  Receipt Date: 20081211
  Transmission Date: 20090719
  Serious: No
  Sender: FDA-Public Use
  Company Number: US-BAYER-200841000NA

PATIENT
  Age: 42 Year
  Sex: Female
  Weight: 108 kg

DRUGS (4)
  1. MIRENA [Suspect]
     Indication: CONTRACEPTION
     Route: 015
     Dates: start: 20080301
  2. ZYRTEC [Concomitant]
  3. NASONEX [Concomitant]
  4. VITAMIN TAB [Concomitant]

REACTIONS (2)
  - BREAST TENDERNESS [None]
  - WEIGHT INCREASED [None]
